FAERS Safety Report 9259610 (Version 2)
Quarter: 2013Q2

REPORT INFORMATION
  Report Type: Spontaneous
  Country: US (occurrence: US)
  Receive Date: 20130429
  Receipt Date: 20130503
  Transmission Date: 20140414
  Serious: Yes (Hospitalization)
  Sender: FDA-Public Use
  Company Number: US-GLENMARK GENERICS INC.-2013GMK005551

PATIENT
  Age: 64 Year
  Sex: Female
  Weight: 55 kg

DRUGS (9)
  1. CARVEDILOL [Suspect]
     Indication: PRODUCT USED FOR UNKNOWN INDICATION
     Dosage: 12.5 MG, BID
     Route: 048
  2. CARVEDILOL [Suspect]
     Dosage: 25 MG, BID
     Route: 048
  3. DALTEPARIN [Concomitant]
     Indication: PRODUCT USED FOR UNKNOWN INDICATION
     Dosage: 12500 UNITS, QD
     Route: 058
  4. WARFARIN SODIUM [Concomitant]
     Indication: PRODUCT USED FOR UNKNOWN INDICATION
     Dosage: 5 MG, QD
     Route: 048
  5. WARFARIN SODIUM [Concomitant]
     Dosage: 2.5 MG, QD
  6. HYDROCHLOROTHIAZIDE W/TRIAMTERENE [Concomitant]
     Indication: PRODUCT USED FOR UNKNOWN INDICATION
     Dosage: 2 DF, QD
     Route: 048
  7. FERROUS SULFATE [Concomitant]
     Indication: PRODUCT USED FOR UNKNOWN INDICATION
     Dosage: 325 MG, TID
     Route: 048
  8. DOCUSATE SODIUM [Concomitant]
     Indication: PRODUCT USED FOR UNKNOWN INDICATION
     Dosage: 1 DF, QD, AS NEEDED
     Route: 048
  9. ARGATROBAN [Concomitant]
     Indication: PULMONARY EMBOLISM
     Dosage: UNK
     Route: 042

REACTIONS (6)
  - Thrombocytopenia [Recovered/Resolved]
  - Blood creatinine increased [None]
  - Prothrombin time prolonged [None]
  - Weight decreased [None]
  - Hypertension [None]
  - Platelet morphology abnormal [None]
